FAERS Safety Report 17125470 (Version 1)
Quarter: 2019Q4

REPORT INFORMATION
  Report Type: Spontaneous
  Country: FR (occurrence: FR)
  Receive Date: 20191207
  Receipt Date: 20191207
  Transmission Date: 20200122
  Serious: Yes (Hospitalization)
  Sender: FDA-Public Use
  Company Number: FR-ACCORD-163747

PATIENT
  Age: 73 Year
  Sex: Female
  Weight: 60 kg

DRUGS (4)
  1. VECTIBIX [Concomitant]
     Active Substance: PANITUMUMAB
     Dosage: STRENGTH: 20 MG/ ML
     Route: 041
     Dates: start: 20190801, end: 20190801
  2. ONDANSETRON ACCORD [Concomitant]
     Active Substance: ONDANSETRON
     Indication: PREMEDICATION
     Route: 042
     Dates: start: 20190801, end: 20190801
  3. OXALIPLATIN ACCORD [Suspect]
     Active Substance: OXALIPLATIN
     Indication: COLON CANCER
     Route: 041
     Dates: start: 20190801, end: 20190801
  4. METHYLPREDNISOLONE MYLAN [Concomitant]
     Active Substance: METHYLPREDNISOLONE
     Indication: PREMEDICATION
     Route: 042
     Dates: start: 20190801, end: 20190801

REACTIONS (3)
  - Vulvovaginal burning sensation [Recovered/Resolved]
  - Burning sensation [Recovered/Resolved]
  - Infusion related reaction [Recovered/Resolved]

NARRATIVE: CASE EVENT DATE: 20190801
